FAERS Safety Report 8449051-0 (Version None)
Quarter: 2012Q2

REPORT INFORMATION
  Report Type: 
  Country: None (occurrence: None)
  Receive Date: 20120619
  Receipt Date: 20120604
  Transmission Date: 20120825
  Serious: No
  Sender: FDA-Public Use
  Company Number: US-ASTRAZENECA-2012SE37337

PATIENT
  Age: 72 Year
  Sex: Female
  Weight: 54.9 kg

DRUGS (5)
  1. NEXIUM [Suspect]
     Indication: DYSPEPSIA
     Route: 048
     Dates: start: 20120601
  2. SYNTHROID [Concomitant]
  3. PRILOSEC [Suspect]
     Route: 048
  4. NEXIUM [Suspect]
     Indication: GASTRITIS
     Route: 048
     Dates: start: 20120601
  5. NEXIUM [Suspect]
     Indication: OESOPHAGITIS
     Route: 048
     Dates: start: 20120601

REACTIONS (4)
  - DYSGEUSIA [None]
  - DRUG INEFFECTIVE [None]
  - OFF LABEL USE [None]
  - HEADACHE [None]
